FAERS Safety Report 4964349-6 (Version None)
Quarter: 2006Q1

REPORT INFORMATION
  Report Type: 
  Country: None (occurrence: None)
  Receive Date: 20060331
  Receipt Date: 20060315
  Transmission Date: 20060701
  Serious: Yes (Life-Threatening)
  Sender: FDA-Public Use
  Company Number: DSA_27925_2006

PATIENT
  Sex: Female

DRUGS (14)
  1. ENALAPRIL MALEATE [Suspect]
     Indication: CARDIAC FAILURE CONGESTIVE
     Dosage: 20 MG BID PO
     Route: 048
     Dates: start: 19930101, end: 20060218
  2. DOXAZOSIN MESYLATE [Concomitant]
  3. ATORVASTATIN CALCIUM [Concomitant]
  4. HUMALOG [Concomitant]
  5. SERETIDE [Concomitant]
  6. CITALOPRAM [Concomitant]
  7. ASPIRIN [Concomitant]
  8. OXYCODONE HCL [Concomitant]
  9. ACETAMINOPHEN [Concomitant]
  10. FUROSEMIDE [Concomitant]
  11. TIOTROPIUM BROMIDE [Concomitant]
  12. DILTIAZEM HYDROCHLORIDE [Concomitant]
  13. EPIPEN [Concomitant]
  14. ALBUTEROL [Concomitant]

REACTIONS (1)
  - ANGIONEUROTIC OEDEMA [None]
